FAERS Safety Report 21657651 (Version 1)
Quarter: 2022Q4

REPORT INFORMATION
  Report Type: Spontaneous
  Country: US (occurrence: US)
  Receive Date: 20221129
  Receipt Date: 20221129
  Transmission Date: 20230113
  Serious: Yes (Hospitalization, Other)
  Sender: FDA-Public Use
  Company Number: US-drreddys-SPO/USA/22/0157407

PATIENT
  Age: 67 Year
  Sex: Male

DRUGS (7)
  1. AMIODARONE HYDROCHLORIDE [Suspect]
     Active Substance: AMIODARONE HYDROCHLORIDE
     Indication: Atrial flutter
  2. METOPROLOL SUCCINATE [Suspect]
     Active Substance: METOPROLOL SUCCINATE
     Indication: Arrhythmia
  3. METOPROLOL SUCCINATE [Suspect]
     Active Substance: METOPROLOL SUCCINATE
  4. EVOLOCUMAB 140mg [Concomitant]
     Indication: Product used for unknown indication
     Route: 058
  5. ACETYLSALICYLIC ACID 81 mg [Concomitant]
     Indication: Product used for unknown indication
  6. AMLODIPINE [Concomitant]
     Active Substance: AMLODIPINE BESYLATE
     Indication: Product used for unknown indication
  7. TICAGRELOR [Concomitant]
     Active Substance: TICAGRELOR
     Indication: Product used for unknown indication
     Route: 058

REACTIONS (7)
  - Mitral valve incompetence [Unknown]
  - Atrial enlargement [Unknown]
  - Electrocardiogram P wave abnormal [Not Recovered/Not Resolved]
  - Electrocardiogram PR prolongation [Not Recovered/Not Resolved]
  - Diastolic dysfunction [Unknown]
  - Dyspnoea [Recovering/Resolving]
  - Left ventricular failure [Unknown]
